FAERS Safety Report 12071947 (Version 1)
Quarter: 2016Q1

REPORT INFORMATION
  Report Type: Report from Study
  Country: US (occurrence: US)
  Receive Date: 20160212
  Receipt Date: 20160212
  Transmission Date: 20160526
  Serious: Yes (Other)
  Sender: FDA-Public Use
  Company Number: US-AMGEN-USASL2016016452

PATIENT
  Age: 32 Year
  Sex: Female

DRUGS (1)
  1. ENBREL [Suspect]
     Active Substance: ETANERCEPT
     Indication: TRACHEAL DISORDER
     Dosage: 50 MG, WEEKLY
     Route: 065
     Dates: end: 20160120

REACTIONS (4)
  - Off label use [Unknown]
  - Tracheal disorder [Unknown]
  - Respiratory disorder [Not Recovered/Not Resolved]
  - Tracheostomy [Not Recovered/Not Resolved]
